FAERS Safety Report 8416243-6 (Version None)
Quarter: 2012Q2

REPORT INFORMATION
  Report Type: 
  Country: None (occurrence: None)
  Receive Date: 20120323
  Receipt Date: 20111221
  Transmission Date: 20120825
  Serious: Yes (Other)
  Sender: FDA-Public Use
  Company Number: 163-21880-11122736

PATIENT
  Age: 63 Year
  Sex: Male
  Weight: 91.6266 kg

DRUGS (25)
  1. ARANESP [Concomitant]
  2. DECADRON [Concomitant]
  3. LASX (FUROSEMIDE) [Concomitant]
  4. METOLAZONE [Concomitant]
  5. PREDNISONE TAB [Concomitant]
  6. RANITIDINE HYDROCHLORIDE [Concomitant]
  7. VALACYCLOVIR [Concomitant]
  8. VOLTAREN [Concomitant]
  9. FISH OIL (FISH OIL) [Concomitant]
  10. GEMFIBROZIL [Concomitant]
  11. ZETIA [Concomitant]
  12. LIDODERM [Concomitant]
  13. DOCUSATE (DOCUSATE) [Concomitant]
  14. RENVELA [Concomitant]
  15. AMMONIUN LAC (AMMONIUM LACTATE) [Concomitant]
  16. CRESTOR [Concomitant]
  17. VICODIN [Concomitant]
  18. REVLIMID [Suspect]
     Indication: MULTIPLE MYELOMA
     Dosage: 10 MG, DAILY X 28 DAYS, PO 5 MG, QOD, PO
     Route: 048
     Dates: start: 20111111
  19. REVLIMID [Suspect]
     Indication: MULTIPLE MYELOMA
     Dosage: 10 MG, DAILY X 28 DAYS, PO 5 MG, QOD, PO
     Route: 048
     Dates: start: 20110101
  20. CARVEDILOL [Concomitant]
  21. FLUOCINONIDE [Concomitant]
  22. FOLIC ACID [Concomitant]
  23. MELATONIN (MELATONIN) [Concomitant]
  24. MIRALAX [Concomitant]
  25. MULTIVITAMINS WITH MINERALS (MULTIVITRAMINS WITH MINERALS) [Concomitant]

REACTIONS (2)
  - NASOPHARYNGITIS [None]
  - BLOOD CREATININE INCREASED [None]
